FAERS Safety Report 23058377 (Version 2)
Quarter: 2025Q2

REPORT INFORMATION
  Report Type: Spontaneous
  Country: SE (occurrence: SE)
  Receive Date: 20231012
  Receipt Date: 20250620
  Transmission Date: 20250716
  Serious: Yes (Hospitalization)
  Sender: ORGANON
  Company Number: None

PATIENT
  Age: 36 Year
  Sex: Male

DRUGS (4)
  1. LOSARTAN POTASSIUM [Suspect]
     Active Substance: LOSARTAN POTASSIUM
     Dates: start: 20230909, end: 20230909
  2. PROPIOMAZINE [Suspect]
     Active Substance: PROPIOMAZINE
     Dates: start: 20230909, end: 20230909
  3. QUETIAPINE [Suspect]
     Active Substance: QUETIAPINE
     Dates: start: 20230909, end: 20230909
  4. AMITRIPTYLINE [Suspect]
     Active Substance: AMITRIPTYLINE
     Dates: start: 20230909, end: 20230909

REACTIONS (5)
  - Toxicity to various agents [Recovering/Resolving]
  - Sinus tachycardia [Recovering/Resolving]
  - Suicide attempt [Recovering/Resolving]
  - Intentional overdose [Recovering/Resolving]
  - Depressed level of consciousness [Recovering/Resolving]

NARRATIVE: CASE EVENT DATE: 20230909
